FAERS Safety Report 19283522 (Version 1)
Quarter: 2021Q2

REPORT INFORMATION
  Report Type: Spontaneous
  Country: US (occurrence: US)
  Receive Date: 20210521
  Receipt Date: 20210521
  Transmission Date: 20210717
  Serious: Yes (Hospitalization)
  Sender: FDA-Public Use
  Company Number: None

PATIENT
  Age: 50 Year
  Sex: Female
  Weight: 36 kg

DRUGS (1)
  1. TOPOTECAN [Suspect]
     Active Substance: TOPOTECAN HYDROCHLORIDE
     Dates: end: 20210329

REACTIONS (4)
  - Intestinal obstruction [None]
  - Malignant neoplasm progression [None]
  - Abdominal adhesions [None]
  - Mechanical ileus [None]

NARRATIVE: CASE EVENT DATE: 20210422
